FAERS Safety Report 9321620 (Version 2)
Quarter: 2013Q2

REPORT INFORMATION
  Report Type: Spontaneous
  Country: GB (occurrence: None)
  Receive Date: 20130529
  Receipt Date: 20130617
  Transmission Date: 20140414
  Serious: Yes (Death)
  Sender: FDA-Public Use
  Company Number: 2013MPI00297

PATIENT
  Sex: 0

DRUGS (3)
  1. ADCETRIS (BRENTUXIMAB VEDOTIN) INJECTION [Suspect]
     Indication: HODGKIN^S DISEASE
  2. ADCETRIS (BRENTUXIMAB VEDOTIN) INJECTION [Suspect]
     Indication: STEM CELL TRANSPLANT
  3. ADCETRIS (BRENTUXIMAB VEDOTIN) INJECTION [Suspect]
     Indication: POST PROCEDURAL COMPLICATION

REACTIONS (1)
  - Infection [None]
